FAERS Safety Report 16248948 (Version 2)
Quarter: 2019Q2

REPORT INFORMATION
  Report Type: Spontaneous
  Country: IT (occurrence: IT)
  Receive Date: 20190429
  Receipt Date: 20190620
  Transmission Date: 20190711
  Serious: Yes (Other)
  Sender: FDA-Public Use
  Company Number: IT-ACCORD-124609

PATIENT
  Age: 59 Year
  Sex: Female

DRUGS (2)
  1. PACLITAXEL ACCORD HEALTHCARE [Suspect]
     Active Substance: PACLITAXEL
     Indication: BREAST CANCER
     Route: 042
     Dates: start: 20190301, end: 20190301
  2. AVASTIN [Suspect]
     Active Substance: BEVACIZUMAB
     Indication: BREAST CANCER
     Route: 042
     Dates: start: 20190301, end: 20190301

REACTIONS (2)
  - Hypertransaminasaemia [Unknown]
  - Neutropenia [Unknown]
